FAERS Safety Report 4966136-1 (Version None)
Quarter: 2006Q2

REPORT INFORMATION
  Report Type: 
  Country: None (occurrence: None)
  Receive Date: 20060407
  Receipt Date: 20060329
  Transmission Date: 20061013
  Serious: Yes (Hospitalization)
  Sender: FDA-Public Use
  Company Number: JP-JNJFOC-20060303730

PATIENT
  Age: 72 Year
  Sex: Female
  Weight: 40 kg

DRUGS (11)
  1. REMICADE [Suspect]
     Indication: RHEUMATOID ARTHRITIS
     Route: 042
  2. PREDONINE [Suspect]
     Indication: ANTIINFLAMMATORY THERAPY
     Route: 048
  3. PARAMEZONE [Suspect]
     Indication: DRUG USE FOR UNKNOWN INDICATION
     Dosage: DOSE 4 MG AND 2 MG
     Route: 048
  4. BUCILLAMINE [Suspect]
     Indication: DRUG USE FOR UNKNOWN INDICATION
     Dosage: DOSE 200MG AND 100 MG
     Route: 048
  5. INDOMETHACIN [Suspect]
     Indication: DRUG USE FOR UNKNOWN INDICATION
     Dosage: DOSE IS 75MG AND 37.5MG
     Route: 048
  6. EUGLUCON [Suspect]
     Indication: DRUG USE FOR UNKNOWN INDICATION
     Route: 048
  7. RHEUMATREX [Concomitant]
     Indication: RHEUMATOID ARTHRITIS
     Route: 048
  8. RIMATIL [Concomitant]
     Route: 048
  9. NISUTADIL [Concomitant]
     Dosage: DOSE 40MG AND 20 MG
     Route: 048
  10. DOXAZOSIN MESYLATE [Concomitant]
     Dosage: DOSE 2MG AND 1MG
     Route: 048
  11. CALCITRIOL [Concomitant]
     Dosage: DOSE IS 0.5RG AND 0.25 RG
     Route: 048

REACTIONS (3)
  - BONE MARROW FAILURE [None]
  - CELLULITIS [None]
  - PURULENCE [None]
